FAERS Safety Report 21667238 (Version 2)
Quarter: 2022Q4

REPORT INFORMATION
  Report Type: Spontaneous
  Country: MX (occurrence: MX)
  Receive Date: 20221201
  Receipt Date: 20221226
  Transmission Date: 20230113
  Serious: Yes (Other)
  Sender: FDA-Public Use
  Company Number: MX-GSKCCFAMERS-Case-01566631_AE-88561

PATIENT

DRUGS (1)
  1. NUCALA [Suspect]
     Active Substance: MEPOLIZUMAB
     Indication: Product used for unknown indication
     Dosage: 100 MG

REACTIONS (5)
  - Rheumatoid arthritis [Unknown]
  - Multiple allergies [Unknown]
  - Osteoarthritis [Unknown]
  - Product use in unapproved indication [Unknown]
  - Product availability issue [Unknown]
